FAERS Safety Report 10672478 (Version 1)
Quarter: 2014Q4

REPORT INFORMATION
  Report Type: Spontaneous
  Country: US (occurrence: None)
  Receive Date: 20141222
  Receipt Date: 20141222
  Transmission Date: 20150529
  Serious: No
  Sender: FDA-Public Use
  Company Number: None

PATIENT
  Age: 47 Year
  Sex: Female
  Weight: 78.02 kg

DRUGS (1)
  1. BUPROPRION [Suspect]
     Active Substance: BUPROPION
     Indication: DEPRESSION
     Dosage: 1 PILL, ONCE DAILY, TAKEN BY MOUTH
     Route: 048

REACTIONS (10)
  - Depression [None]
  - Nightmare [None]
  - Abnormal dreams [None]
  - Dry mouth [None]
  - Menstrual disorder [None]
  - Insomnia [None]
  - Weight increased [None]
  - Crying [None]
  - Drug ineffective [None]
  - Middle insomnia [None]

NARRATIVE: CASE EVENT DATE: 20141221
